FAERS Safety Report 9762676 (Version 2)
Quarter: 2014Q1

REPORT INFORMATION
  Report Type: Spontaneous
  Country: DK (occurrence: DK)
  Receive Date: 20131216
  Receipt Date: 20140119
  Transmission Date: 20141002
  Serious: Yes (Death, Congenital Anomaly)
  Sender: FDA-Public Use
  Company Number: DK-ASTRAZENECA-2013SE91014

PATIENT
  Age: 0 Week
  Sex: 0

DRUGS (1)
  1. SEROQUEL [Suspect]
     Indication: ATTENTION DEFICIT/HYPERACTIVITY DISORDER
     Route: 064
     Dates: end: 20030826

REACTIONS (7)
  - Holoprosencephaly [Fatal]
  - Meningomyelocele [Not Recovered/Not Resolved]
  - Congenital diaphragmatic hernia [Not Recovered/Not Resolved]
  - Cerebellar hypoplasia [Fatal]
  - Asphyxia [Fatal]
  - Congenital musculoskeletal anomaly [Fatal]
  - Congenital anomaly of adrenal gland [Fatal]
